FAERS Safety Report 4547216-1 (Version None)
Quarter: 2005Q1

REPORT INFORMATION
  Report Type: 
  Country: None (occurrence: None)
  Receive Date: 20050107
  Receipt Date: 20041230
  Transmission Date: 20050727
  Serious: Yes (Hospitalization)
  Sender: FDA-Public Use
  Company Number: US-JNJFOC-20050100373

PATIENT
  Sex: Female
  Weight: 67.3 kg

DRUGS (6)
  1. RISPERDAL [Suspect]
     Route: 065
     Dates: start: 20040322
  2. RISPERDAL [Suspect]
     Indication: SCHIZOPHRENIA
     Route: 065
     Dates: start: 20040322
  3. BIFEPRUNOX [Concomitant]
     Route: 065
     Dates: start: 20040322
  4. BIFEPRUNOX [Concomitant]
     Indication: SCHIZOPHRENIA
     Route: 065
     Dates: start: 20040322
  5. PLACEBO [Suspect]
  6. PLACEBO [Suspect]
     Indication: SCHIZOPHRENIA

REACTIONS (2)
  - HALLUCINATION, AUDITORY [None]
  - HERPES ZOSTER [None]
